FAERS Safety Report 18742204 (Version 1)
Quarter: 2021Q1

REPORT INFORMATION
  Report Type: Spontaneous
  Country: AU (occurrence: AU)
  Receive Date: 20210114
  Receipt Date: 20210114
  Transmission Date: 20210419
  Serious: Yes (Life-Threatening, Hospitalization, Other)
  Sender: FDA-Public Use
  Company Number: AU-MYLANLABS-2021M1001813

PATIENT
  Age: 43 Year
  Sex: Female

DRUGS (1)
  1. OMEPRAZOLE. [Suspect]
     Active Substance: OMEPRAZOLE
     Indication: ABDOMINAL DISTENSION
     Dosage: UNK

REACTIONS (16)
  - Acute respiratory distress syndrome [Recovering/Resolving]
  - Skin exfoliation [Unknown]
  - Mucosal ulceration [Unknown]
  - Neutropenia [Recovering/Resolving]
  - Blister [Unknown]
  - Hypoxia [Recovering/Resolving]
  - Dyspnoea [Unknown]
  - Pneumonia [Recovering/Resolving]
  - Sepsis [Recovering/Resolving]
  - Conjunctivitis [Unknown]
  - Pyrexia [Unknown]
  - Rash erythematous [Unknown]
  - Oropharyngeal discomfort [Unknown]
  - Acute kidney injury [Not Recovered/Not Resolved]
  - Blepharitis [Unknown]
  - Toxic epidermal necrolysis [Recovering/Resolving]
